FAERS Safety Report 7265173-4 (Version None)
Quarter: 2011Q1

REPORT INFORMATION
  Report Type: 
  Country: None (occurrence: None)
  Receive Date: 20110131
  Receipt Date: 20110119
  Transmission Date: 20110831
  Serious: Yes (Other)
  Sender: FDA-Public Use
  Company Number: PHHY2010CA81504

PATIENT
  Sex: Female

DRUGS (1)
  1. ACLASTA [Suspect]
     Indication: OSTEOPOROSIS
     Dates: start: 20091218

REACTIONS (4)
  - RHEUMATOID ARTHRITIS [None]
  - PAIN [None]
  - MALAISE [None]
  - MOVEMENT DISORDER [None]
